FAERS Safety Report 13297331 (Version 1)
Quarter: 2017Q1

REPORT INFORMATION
  Report Type: Spontaneous
  Country: US (occurrence: US)
  Receive Date: 20170306
  Receipt Date: 20170306
  Transmission Date: 20170428
  Serious: Yes (Other)
  Sender: FDA-Public Use
  Company Number: US-GLAXOSMITHKLINE-US2017GSK030331

PATIENT
  Sex: Female

DRUGS (2)
  1. LAMICTAL [Suspect]
     Active Substance: LAMOTRIGINE
     Indication: BIPOLAR DISORDER
     Dosage: UNK, U
     Dates: start: 2013
  2. LAMICTAL [Suspect]
     Active Substance: LAMOTRIGINE
     Indication: MANIA

REACTIONS (5)
  - Throat tightness [Unknown]
  - Pain of skin [Recovering/Resolving]
  - Rash papular [Recovering/Resolving]
  - Rash erythematous [Recovering/Resolving]
  - Drug hypersensitivity [Unknown]
